FAERS Safety Report 8819206 (Version 1)
Quarter: 2012Q4

REPORT INFORMATION
  Report Type: 
  Country: CO (occurrence: CO)
  Receive Date: 20121001
  Receipt Date: 20121001
  Transmission Date: 20130627
  Serious: Yes (Other)
  Sender: FDA-Public Use
  Company Number: CO-JNJFOC-20120909801

PATIENT
  Sex: Female
  Weight: 51 kg

DRUGS (1)
  1. NICORETTE MINT GUM 4MG [Suspect]
     Indication: PRODUCT USED FOR UNKNOWN INDICATION
     Dosage: 4 mg gum, 4 to 6 gums a day
     Route: 048
     Dates: start: 2009

REACTIONS (2)
  - Nicotine dependence [Not Recovered/Not Resolved]
  - Incorrect drug administration duration [Unknown]
